FAERS Safety Report 12754877 (Version 1)
Quarter: 2016Q3

REPORT INFORMATION
  Report Type: Report from Study
  Country: GB (occurrence: GB)
  Receive Date: 20160916
  Receipt Date: 20160916
  Transmission Date: 20161109
  Serious: Yes (Hospitalization, Other)
  Sender: FDA-Public Use
  Company Number: PHFR2016GB007309

PATIENT
  Age: 35 Year
  Sex: Female

DRUGS (2)
  1. GILENYA [Suspect]
     Active Substance: FINGOLIMOD HYDROCHLORIDE
     Indication: MULTIPLE SCLEROSIS
     Dosage: FULL DOSE, QD
     Route: 065
     Dates: start: 20141124, end: 20151020
  2. GILENYA [Suspect]
     Active Substance: FINGOLIMOD HYDROCHLORIDE
     Dosage: FULL DOSE, QOD
     Route: 065
     Dates: start: 20151021

REACTIONS (18)
  - Feeling cold [Unknown]
  - Headache [Recovered/Resolved]
  - Nausea [Unknown]
  - Atrioventricular block [Recovered/Resolved]
  - Decreased appetite [Unknown]
  - Fatigue [Unknown]
  - Urinary hesitation [Unknown]
  - Balance disorder [Unknown]
  - Dizziness [Unknown]
  - Malaise [Unknown]
  - Vision blurred [Recovered/Resolved]
  - Urinary tract infection [Unknown]
  - Rash pruritic [Unknown]
  - Gait disturbance [Unknown]
  - Neutropenia [Recovering/Resolving]
  - Feeling abnormal [Unknown]
  - Lymphopenia [Recovering/Resolving]
  - Intentional underdose [Unknown]

NARRATIVE: CASE EVENT DATE: 20141124
